FAERS Safety Report 23259928 (Version 1)
Quarter: 2023Q4

REPORT INFORMATION
  Report Type: Spontaneous
  Country: CZ (occurrence: CZ)
  Receive Date: 20231204
  Receipt Date: 20231204
  Transmission Date: 20240110
  Serious: Yes (Life-Threatening, Other)
  Sender: FDA-Public Use
  Company Number: None

PATIENT
  Age: 71 Year
  Sex: Male
  Weight: 96 kg

DRUGS (8)
  1. INLYTA [Suspect]
     Active Substance: AXITINIB
     Indication: Renal cancer
     Dosage: FREQ:12 H
     Route: 048
     Dates: start: 20170411
  2. INLYTA [Suspect]
     Active Substance: AXITINIB
     Dosage: FREQ:12 H
     Route: 048
     Dates: start: 20220204, end: 20220225
  3. AMLODIPINE BESYLATE [Concomitant]
     Active Substance: AMLODIPINE BESYLATE
     Dosage: FREQ:24 H;1-0-0
  4. ALPRAZOLAM [Concomitant]
     Active Substance: ALPRAZOLAM
     Dosage: 1 MG
  5. OMEPRAZOLE [Concomitant]
     Active Substance: OMEPRAZOLE
     Dosage: FREQ:24 H;1-0-0
  6. LEVOTHYROXINE SODIUM [Concomitant]
     Active Substance: LEVOTHYROXINE SODIUM
     Dosage: FREQ:24 H;1-0-0 4 DAYS, THEN 1/2-0-0  3 DAYS
  7. ALLOPURINOL [Concomitant]
     Active Substance: ALLOPURINOL
     Dosage: FREQ:24 H;0-1-0
  8. ROSUVASTATIN CALCIUM [Concomitant]
     Active Substance: ROSUVASTATIN CALCIUM
     Dosage: FREQ:24 H;1-0-0

REACTIONS (5)
  - Nephropathy toxic [Unknown]
  - Skin ulcer [Recovered/Resolved]
  - Proteinuria [Not Recovered/Not Resolved]
  - Chronic kidney disease [Not Recovered/Not Resolved]
  - Nephropathy [Not Recovered/Not Resolved]

NARRATIVE: CASE EVENT DATE: 20170101
